FAERS Safety Report 24694516 (Version 1)
Quarter: 2024Q4

REPORT INFORMATION
  Report Type: Report from Study
  Country: US (occurrence: US)
  Receive Date: 20241204
  Receipt Date: 20241204
  Transmission Date: 20250115
  Serious: Yes (Hospitalization, Other)
  Sender: TEVA
  Company Number: US-TEVA-VS-3271343

PATIENT
  Age: 73 Year
  Sex: Female

DRUGS (1)
  1. BOSENTAN [Suspect]
     Active Substance: BOSENTAN
     Indication: Product used for unknown indication
     Dosage: TEVA
     Route: 065

REACTIONS (5)
  - Hepatic enzyme increased [Recovered/Resolved]
  - Pancreatitis [Unknown]
  - Enterocolitis [Unknown]
  - Abdominal pain upper [Unknown]
  - Malaise [Unknown]
